FAERS Safety Report 7726384-4 (Version None)
Quarter: 2011Q3

REPORT INFORMATION
  Report Type: 
  Country: None (occurrence: None)
  Receive Date: 20110902
  Receipt Date: 20110823
  Transmission Date: 20111222
  Serious: Yes (Hospitalization)
  Sender: FDA-Public Use
  Company Number: FR-MILLENNIUM PHARMACEUTICALS, INC.-2011-03942

PATIENT

DRUGS (11)
  1. CYCLOPHOSPHAMIDE [Suspect]
     Indication: MULTIPLE MYELOMA
     Dosage: 500 MG, 1/WEEK
     Route: 048
     Dates: start: 20110218
  2. ALLOPURINOL [Concomitant]
  3. EZETIMIBE [Concomitant]
  4. CALCIDIA [Concomitant]
  5. IKOREL [Concomitant]
  6. DEXAMETHASONE [Suspect]
     Indication: MULTIPLE MYELOMA
     Dosage: 10 MG, UNK
     Route: 048
     Dates: start: 20110218
  7. PREVISCAN                          /00261401/ [Concomitant]
  8. BISOPROLOL FUMARATE [Concomitant]
  9. NEXIUM [Concomitant]
  10. LASIX [Concomitant]
  11. VELCADE [Suspect]
     Indication: MULTIPLE MYELOMA
     Dosage: 1.3 MG/M2, UNK
     Route: 042
     Dates: start: 20110218

REACTIONS (2)
  - BACTERIAL DISEASE CARRIER [None]
  - LUNG DISORDER [None]
